FAERS Safety Report 16485702 (Version 1)
Quarter: 2019Q2

REPORT INFORMATION
  Report Type: Spontaneous
  Country: FR (occurrence: FR)
  Receive Date: 20190627
  Receipt Date: 20190627
  Transmission Date: 20190711
  Serious: Yes (Other)
  Sender: FDA-Public Use
  Company Number: FR-MYLANLABS-2019M1059559

PATIENT
  Age: 3 Year
  Sex: Male
  Weight: 15.8 kg

DRUGS (2)
  1. PREDNISONE. [Suspect]
     Active Substance: PREDNISONE
     Indication: NEPHROTIC SYNDROME
     Dosage: 40 MILLIGRAM, QOD
     Route: 048
     Dates: start: 201803
  2. MODIGRAF /01219902/ [Suspect]
     Active Substance: TACROLIMUS
     Indication: NEPHROTIC SYNDROME
     Dosage: 6 MILLIGRAM, QD
     Route: 048
     Dates: start: 20180706, end: 20181221

REACTIONS (2)
  - Purpura [Recovering/Resolving]
  - Thrombocytopenia [Recovering/Resolving]

NARRATIVE: CASE EVENT DATE: 20181221
